FAERS Safety Report 9548701 (Version 1)
Quarter: 2013Q2

REPORT INFORMATION
  Report Type: Spontaneous
  Country: US (occurrence: None)
  Receive Date: 20130607
  Receipt Date: 20130607
  Transmission Date: 20140414
  Serious: Yes (Hospitalization)
  Sender: FDA-Public Use
  Company Number: SP05942

PATIENT
  Age: 48 Year
  Sex: Female

DRUGS (1)
  1. XIFAXAN [Suspect]
     Indication: OVERGROWTH BACTERIAL
     Dosage: 1100 MG (550 MG, 2 IN 1 D), ORAL
     Route: 048
     Dates: start: 20120716

REACTIONS (4)
  - Abdominal pain [None]
  - Abdominal distension [None]
  - Flatulence [None]
  - Dizziness [None]
